FAERS Safety Report 18621080 (Version 4)
Quarter: 2021Q3

REPORT INFORMATION
  Report Type: Report from Study
  Country: US (occurrence: US)
  Receive Date: 20201215
  Receipt Date: 20210705
  Transmission Date: 20211014
  Serious: No
  Sender: FDA-Public Use
  Company Number: NVSC2020US330136

PATIENT
  Sex: Female

DRUGS (1)
  1. COSENTYX [Suspect]
     Active Substance: SECUKINUMAB
     Indication: ANKYLOSING SPONDYLITIS
     Dosage: 300 MG, QMO (2 PENS, EACH DOSE 150 MG, EVERY 28 DAYS)
     Route: 065

REACTIONS (4)
  - Anaemia [Unknown]
  - Haemoglobin decreased [Unknown]
  - COVID-19 [Unknown]
  - Pain [Unknown]
